FAERS Safety Report 6020285-8 (Version None)
Quarter: 2008Q4

REPORT INFORMATION
  Report Type: 
  Country: None (occurrence: None)
  Receive Date: 20081223
  Receipt Date: 20081223
  Transmission Date: 20090506
  Serious: Yes (Other)
  Sender: FDA-Public Use
  Company Number: None

PATIENT
  Sex: Female
  Weight: 75.73 kg

DRUGS (6)
  1. INDOCIN SR [Suspect]
     Dosage: 75MG CAPSULE SA 75 MG BID ORAL
     Route: 048
     Dates: start: 20081218, end: 20081222
  2. DESOGESTREL AND ETHINYL ESTRADIOL [Concomitant]
  3. ENBREL [Concomitant]
  4. LIDEX 0.05% OINTMENT (FLUOCINONIDE) [Concomitant]
  5. LIDEX SOLUTION (FLUOCINONIDE) [Concomitant]
  6. VITAMIN D3 (CHOLECALCIFEROL) [Concomitant]

REACTIONS (1)
  - HEADACHE [None]
